FAERS Safety Report 4322360-2 (Version None)
Quarter: 2004Q1

REPORT INFORMATION
  Report Type: 
  Country: None (occurrence: None)
  Receive Date: 20040322
  Receipt Date: 20040322
  Transmission Date: 20041129
  Serious: Yes (Hospitalization)
  Sender: FDA-Public Use
  Company Number: None

PATIENT
  Age: 65 Year
  Sex: Female
  Weight: 54.4316 kg

DRUGS (4)
  1. D-THREO-METHYLPHENIDATE HCL CELGENE/BIOLOGICS [Suspect]
     Indication: METASTASES TO CENTRAL NERVOUS SYSTEM
     Dosage: 5 MG BID
     Dates: start: 20020927, end: 20020930
  2. MEGACE [Concomitant]
  3. DECADRON [Concomitant]
  4. ARIMIDEX [Concomitant]

REACTIONS (4)
  - ANORECTAL DISORDER [None]
  - ASTHENIA [None]
  - MOBILITY DECREASED [None]
  - PAIN [None]
